FAERS Safety Report 13455371 (Version 3)
Quarter: 2017Q3

REPORT INFORMATION
  Report Type: Spontaneous
  Country: US (occurrence: US)
  Receive Date: 20170419
  Receipt Date: 20170908
  Transmission Date: 20171127
  Serious: No
  Sender: FDA-Public Use
  Company Number: US-PFIZER INC-2017165626

PATIENT
  Age: 77 Year
  Sex: Female

DRUGS (3)
  1. IBRANCE [Suspect]
     Active Substance: PALBOCICLIB
     Dosage: UNK
  2. TAXOL [Concomitant]
     Active Substance: PACLITAXEL
     Dosage: UNK, WEEKLY [12 WEEKS ]
  3. TAXOL [Concomitant]
     Active Substance: PACLITAXEL
     Dosage: UNK, WEEKLY [3 MONTHS]

REACTIONS (3)
  - Neoplasm recurrence [Unknown]
  - White blood cell count decreased [Unknown]
  - Platelet count decreased [Unknown]
